FAERS Safety Report 15344051 (Version 2)
Quarter: 2018Q3

REPORT INFORMATION
  Report Type: Report from Study
  Country: US (occurrence: US)
  Receive Date: 20180903
  Receipt Date: 20180905
  Transmission Date: 20181010
  Serious: Yes (Death)
  Sender: FDA-Public Use
  Company Number: US-PFIZER INC-2018353361

PATIENT

DRUGS (7)
  1. PLATINOL [Suspect]
     Active Substance: CISPLATIN
     Indication: LYMPHOMA
     Dosage: 25 MG/M2 (TOTAL, 100 MG/M 2), DAYS 1?4, CONTINUOUS INFUSION
     Route: 042
  2. CYTARABINE. [Suspect]
     Active Substance: CYTARABINE
     Indication: LYMPHOMA
     Dosage: 2 G/M 2, DAY 5
     Route: 042
  3. MANNITOL. [Concomitant]
     Active Substance: MANNITOL
     Dosage: 25 TO 50 G, DAILY
  4. REGLAN [METOCLOPRAMIDE] [Concomitant]
     Indication: ANTIEMETIC SUPPORTIVE CARE
     Dosage: 0.5 TO 1.0 MG/KG
  5. SOLU?MEDROL [Suspect]
     Active Substance: METHYLPREDNISOLONE SODIUM SUCCINATE
     Indication: LYMPHOMA
     Dosage: 250?500 MG, DAYS 1?5
     Route: 042
  6. ETOPOSIDE. [Suspect]
     Active Substance: ETOPOSIDE
     Indication: LYMPHOMA
     Dosage: 40 MG/M2, DAYS 1?4
     Route: 042
  7. NORMAL SALINE [Concomitant]
     Active Substance: SODIUM CHLORIDE
     Dosage: 1 L, UNK

REACTIONS (1)
  - Sepsis [Fatal]
